FAERS Safety Report 8517448-6 (Version None)
Quarter: 2012Q3

REPORT INFORMATION
  Report Type: 
  Country: None (occurrence: None)
  Receive Date: 20120718
  Receipt Date: 20120706
  Transmission Date: 20120928
  Serious: Yes (Hospitalization)
  Sender: FDA-Public Use
  Company Number: JP-009507513-1207JPN000108

PATIENT

DRUGS (9)
  1. REBETOL [Suspect]
     Indication: HEPATITIS C
     Dosage: 1000 MG, QD
     Route: 048
     Dates: start: 20120509
  2. NOVORAPID [Concomitant]
     Dosage: 11 UNITS/DAY
     Route: 042
     Dates: start: 20120530
  3. AMOBAN [Concomitant]
     Dosage: 10 MG, PRN
     Route: 048
     Dates: start: 20120613
  4. LOXONIN [Concomitant]
     Dosage: UNK UNK, PRN
     Route: 048
     Dates: start: 20120509, end: 20120512
  5. TELAPREVIR [Suspect]
     Indication: HEPATITIS C
     Dosage: 2250 MG, QD
     Route: 048
     Dates: start: 20120509
  6. PREDNISOLONE [Suspect]
     Dosage: 20 MG, QD
     Route: 048
     Dates: start: 20120512
  7. PRIMPERAN TAB [Concomitant]
     Dosage: UNK UNK, PRN
     Route: 048
     Dates: start: 20120511
  8. XYZAL [Concomitant]
     Dosage: 5 MG, QD
     Route: 048
     Dates: start: 20120510
  9. PEG-INTRON [Suspect]
     Indication: HEPATITIS C
     Dosage: 1.5MCG/KG/WEEK
     Route: 058
     Dates: start: 20120509

REACTIONS (1)
  - DIABETES MELLITUS [None]
